FAERS Safety Report 16036386 (Version 4)
Quarter: 2019Q2

REPORT INFORMATION
  Report Type: Spontaneous
  Country: US (occurrence: US)
  Receive Date: 20190305
  Receipt Date: 20190409
  Transmission Date: 20190711
  Serious: Yes (Death, Hospitalization)
  Sender: FDA-Public Use
  Company Number: US-CELGENEUS-USA-20190209238

PATIENT
  Age: 88 Year
  Sex: Male

DRUGS (1)
  1. THALOMID [Suspect]
     Active Substance: THALIDOMIDE
     Indication: MYELODYSPLASTIC SYNDROME
     Dosage: 50 MILLIGRAM
     Route: 048
     Dates: start: 20090831, end: 20190225

REACTIONS (4)
  - Oedema peripheral [Not Recovered/Not Resolved]
  - Localised infection [Fatal]
  - Localised oedema [Not Recovered/Not Resolved]
  - Cardiac disorder [Fatal]

NARRATIVE: CASE EVENT DATE: 201902
